FAERS Safety Report 7234057-X (Version None)
Quarter: 2011Q1

REPORT INFORMATION
  Report Type: 
  Country: None (occurrence: None)
  Receive Date: 20110113
  Receipt Date: 20110113
  Transmission Date: 20110831
  Serious: Yes (Hospitalization)
  Sender: FDA-Public Use
  Company Number: None

PATIENT
  Sex: Female
  Weight: 70.23 kg

DRUGS (2)
  1. CISPLATIN [Suspect]
     Dosage: 135MG
     Dates: end: 20101123
  2. TAXOL [Suspect]
     Dosage: 240 MG
     Dates: end: 20101122

REACTIONS (8)
  - DYSARTHRIA [None]
  - CELLULITIS [None]
  - URINARY TRACT INFECTION [None]
  - CEREBRAL ISCHAEMIA [None]
  - AMNESIA [None]
  - HAEMODIALYSIS [None]
  - BLOOD CREATININE INCREASED [None]
  - HYPERTENSION [None]
